FAERS Safety Report 9785306 (Version 2)
Quarter: 2013Q4

REPORT INFORMATION
  Report Type: Spontaneous
  Country: US (occurrence: None)
  Receive Date: 20131224
  Receipt Date: 20131227
  Transmission Date: 20140711
  Serious: Yes (Other)
  Sender: FDA-Public Use
  Company Number: 2033912

PATIENT
  Sex: Female

DRUGS (1)
  1. LIDOCAINE HCL [Suspect]
     Indication: PRODUCT USED FOR UNKNOWN INDICATION
     Dates: start: 20130910, end: 20130913

REACTIONS (6)
  - Throat tightness [None]
  - Eye swelling [None]
  - Lip swelling [None]
  - Swollen tongue [None]
  - Urticaria [None]
  - Pharyngeal oedema [None]
